FAERS Safety Report 7569765-4 (Version None)
Quarter: 2011Q2

REPORT INFORMATION
  Report Type: 
  Country: None (occurrence: None)
  Receive Date: 20110621
  Receipt Date: 20110621
  Transmission Date: 20111010
  Serious: Yes (Disabling)
  Sender: FDA-Public Use
  Company Number: None

PATIENT
  Sex: Female
  Weight: 75.7507 kg

DRUGS (5)
  1. EFFEXOR [Concomitant]
  2. LAMICTAL [Concomitant]
  3. BENADRYL [Concomitant]
  4. KLONIPIR [Concomitant]
  5. GEODON [Suspect]
     Indication: SCHIZOAFFECTIVE DISORDER
     Dosage: 160 AM DAILY ORAL 80 PM DAILY ORAL
     Route: 048
     Dates: start: 20040101

REACTIONS (2)
  - DRUG DEPENDENCE [None]
  - DRUG EFFECT DECREASED [None]
